FAERS Safety Report 15211544 (Version 1)
Quarter: 2018Q3

REPORT INFORMATION
  Report Type: Spontaneous
  Country: US (occurrence: US)
  Receive Date: 20180702
  Receipt Date: 20180702
  Transmission Date: 20181010
  Serious: Yes (Hospitalization)
  Sender: FDA-Public Use
  Company Number: None

PATIENT
  Age: 69 Year
  Sex: Male
  Weight: 100.7 kg

DRUGS (2)
  1. PEMBROLIZUMAB. [Suspect]
     Active Substance: PEMBROLIZUMAB
     Indication: GENITOURINARY TRACT NEOPLASM
     Route: 042
     Dates: start: 20180426, end: 20180628
  2. BCG [Concomitant]
     Active Substance: BCG VACCINE

REACTIONS (6)
  - Lymphocele [None]
  - Chills [None]
  - Decreased appetite [None]
  - Abdominal pain [None]
  - Pyrexia [None]
  - Hypotension [None]

NARRATIVE: CASE EVENT DATE: 20180630
